FAERS Safety Report 18850748 (Version 1)
Quarter: 2021Q1

REPORT INFORMATION
  Report Type: Spontaneous
  Country: IN (occurrence: IN)
  Receive Date: 20210205
  Receipt Date: 20210205
  Transmission Date: 20210420
  Serious: Yes (Hospitalization, Other)
  Sender: FDA-Public Use
  Company Number: IN-JNJFOC-20210207350

PATIENT
  Age: 38 Year
  Sex: Male
  Weight: 61 kg

DRUGS (5)
  1. SILDENAFIL. [Suspect]
     Active Substance: SILDENAFIL
     Indication: EUPHORIC MOOD
     Dosage: 2 DOSAGE FORM, 1/DAY
     Route: 048
  2. ALPRAZOLAM. [Suspect]
     Active Substance: ALPRAZOLAM
     Indication: MENTAL DISORDER
     Dosage: 50 DOSAGE FORM, 1/DAY
     Route: 065
  3. TRAMADOL HYDROCHLORIDE. [Suspect]
     Active Substance: TRAMADOL HYDROCHLORIDE
     Indication: MENTAL DISORDER
     Dosage: 30 DOSAGE FORM, 1/DAY
     Route: 065
  4. SILDENAFIL. [Suspect]
     Active Substance: SILDENAFIL
     Dosage: 12 DOSAGE FORM, 1/DAY
     Route: 048
  5. SILDENAFIL. [Suspect]
     Active Substance: SILDENAFIL
     Dosage: 2000 MILLIGRAM, 1/DAY
     Route: 048

REACTIONS (10)
  - Drug abuse [Unknown]
  - Withdrawal syndrome [Unknown]
  - Vision blurred [Unknown]
  - Headache [Unknown]
  - Obsessive thoughts [Unknown]
  - Drug tolerance [Unknown]
  - Euphoric mood [Unknown]
  - Feeling of relaxation [Unknown]
  - Drug dependence [Unknown]
  - Drug use disorder [Unknown]
